FAERS Safety Report 6380914-6 (Version None)
Quarter: 2009Q3

REPORT INFORMATION
  Report Type: 
  Country: None (occurrence: None)
  Receive Date: 20090929
  Receipt Date: 20090924
  Transmission Date: 20100115
  Serious: Yes (Hospitalization)
  Sender: FDA-Public Use
  Company Number: B0595302A

PATIENT
  Age: 78 Year
  Sex: Female

DRUGS (9)
  1. ARIXTRA [Suspect]
     Indication: DEEP VEIN THROMBOSIS
     Dosage: 2.5MG PER DAY
     Route: 065
     Dates: start: 20090917, end: 20090923
  2. AUGMENTIN [Concomitant]
     Dosage: 1.2G THREE TIMES PER DAY
     Route: 065
  3. MONTELUKAST [Concomitant]
     Dosage: 10MG PER DAY
     Route: 065
  4. ANGIZEM [Concomitant]
     Dosage: 30MG TWICE PER DAY
     Route: 065
  5. UNKNOWN [Concomitant]
     Route: 065
  6. UNKNOWN [Concomitant]
     Route: 065
  7. DERIPHYLLINE [Concomitant]
     Route: 065
  8. SALMETEROL [Concomitant]
     Dosage: 40MG PER DAY
     Route: 065
  9. MERONEM [Concomitant]
     Dosage: 1G THREE TIMES PER DAY
     Route: 065

REACTIONS (1)
  - HAEMATURIA [None]
